FAERS Safety Report 8272171-0 (Version None)
Quarter: 2012Q2

REPORT INFORMATION
  Report Type: 
  Country: None (occurrence: None)
  Receive Date: 20120410
  Receipt Date: 20120402
  Transmission Date: 20120825
  Serious: Yes (Hospitalization)
  Sender: FDA-Public Use
  Company Number: DE-JNJFOC-20111211994

PATIENT
  Sex: Male
  Weight: 79 kg

DRUGS (9)
  1. INCIVO [Suspect]
     Indication: HEPATITIS C
     Route: 048
  2. RISPERIDONE [Interacting]
     Indication: SCHIZOPHRENIA
     Route: 048
  3. PROPRANOLOL [Interacting]
     Indication: HAEMORRHAGE
     Route: 065
  4. SORMODREN [Interacting]
     Indication: SCHIZOPHRENIA
     Route: 065
  5. PEGASYS [Concomitant]
     Indication: HEPATITIS C
     Route: 048
  6. SPIRONOLACTONE [Interacting]
     Indication: PRODUCT USED FOR UNKNOWN INDICATION
     Route: 065
  7. ZOPICLON [Interacting]
     Indication: PRODUCT USED FOR UNKNOWN INDICATION
     Route: 065
  8. PANTOPRAZOLE [Interacting]
     Indication: HAEMORRHAGE
     Route: 065
  9. COPEGUS [Concomitant]
     Indication: HEPATITIS C
     Route: 048

REACTIONS (9)
  - DEHYDRATION [None]
  - BRONCHOPNEUMONIA [None]
  - VOMITING [None]
  - PYREXIA [None]
  - DRUG INTERACTION [None]
  - GENERAL PHYSICAL HEALTH DETERIORATION [None]
  - URINARY TRACT INFECTION [None]
  - INADEQUATE DIET [None]
  - PANCYTOPENIA [None]
